FAERS Safety Report 7809710-7 (Version None)
Quarter: 2011Q4

REPORT INFORMATION
  Report Type: 
  Country: None (occurrence: None)
  Receive Date: 20111012
  Receipt Date: 20110913
  Transmission Date: 20120403
  Serious: Yes (Other)
  Sender: FDA-Public Use
  Company Number: JP-VIIV HEALTHCARE LIMITED-B0747759A

PATIENT
  Sex: Male

DRUGS (4)
  1. KALETRA [Suspect]
     Indication: HIV INFECTION
     Dosage: 4IUAX PER DAY
     Route: 048
     Dates: start: 20110817
  2. SULFAMETHOXAZOLE [Suspect]
     Indication: PNEUMOCYSTIS JIROVECI PNEUMONIA
     Dosage: 1IUAX PER DAY
     Route: 048
     Dates: start: 20110706
  3. DIFLUCAN [Suspect]
     Indication: CANDIDIASIS
     Dosage: 50MG PER DAY
     Route: 048
     Dates: start: 20110711
  4. EPZICOM [Suspect]
     Indication: HIV INFECTION
     Dosage: 1IUAX PER DAY
     Route: 048
     Dates: start: 20110802

REACTIONS (3)
  - NEUROPATHY PERIPHERAL [None]
  - OEDEMA PERIPHERAL [None]
  - HYPOAESTHESIA [None]
